FAERS Safety Report 9104236 (Version 2)
Quarter: 2013Q1

REPORT INFORMATION
  Report Type: Other
  Country: KP (occurrence: KP)
  Receive Date: 20130219
  Receipt Date: 20130301
  Transmission Date: 20140127
  Serious: Yes (Hospitalization)
  Sender: FDA-Public Use
  Company Number: KP-PURDUE-USA-2013-0098930

PATIENT
  Age: 57 Year
  Sex: Female

DRUGS (2)
  1. TRAMADOL (SIMILAR TO NDA 21-745) [Suspect]
     Indication: PAIN
     Dosage: 300 MG, DAILY
     Route: 048
  2. ACETAMINOPHEN [Concomitant]
     Dosage: 1950 MG, DAILY
     Route: 048

REACTIONS (1)
  - Hyperaesthesia [Recovered/Resolved]
